FAERS Safety Report 5251200-2 (Version None)
Quarter: 2007Q1

REPORT INFORMATION
  Report Type: 
  Country: None (occurrence: None)
  Receive Date: 20070228
  Receipt Date: 20070219
  Transmission Date: 20070707
  Serious: No
  Sender: FDA-Public Use
  Company Number: GB-BAXTER-2007BH002204

PATIENT
  Age: 66 Year
  Sex: Male

DRUGS (1)
  1. ADENOSINE [Suspect]
     Indication: SCAN MYOCARDIAL PERFUSION
     Route: 065

REACTIONS (4)
  - ARTERIOSPASM CORONARY [None]
  - CHEST PAIN [None]
  - ELECTROCARDIOGRAM ST SEGMENT ELEVATION [None]
  - HYPERHIDROSIS [None]
